FAERS Safety Report 9014542 (Version 1)
Quarter: 2013Q1

REPORT INFORMATION
  Report Type: Spontaneous
  Country: FR (occurrence: FR)
  Receive Date: 20130115
  Receipt Date: 20130115
  Transmission Date: 20140127
  Serious: Yes (Other)
  Sender: FDA-Public Use
  Company Number: FR-ACTELION-A-CH2013-77540

PATIENT
  Age: 5 Year
  Sex: Female

DRUGS (6)
  1. TRACLEER [Suspect]
     Indication: PULMONARY ARTERIAL HYPERTENSION
     Dosage: 31.25 MG, BID
     Route: 048
     Dates: start: 200209
  2. TRACLEER [Suspect]
     Dosage: 15.625 MG, BID
     Route: 048
     Dates: start: 200208, end: 200209
  3. TRACLEER [Suspect]
     Dosage: 90 MG, BID
     Route: 048
  4. FLOLAN [Concomitant]
  5. REVATIO [Concomitant]
     Dosage: 40 MG, OD
     Dates: start: 2002, end: 201205
  6. ADCIRCA [Concomitant]
     Dosage: 40 MG, OD
     Dates: start: 201205

REACTIONS (2)
  - Headache [Not Recovered/Not Resolved]
  - Migraine with aura [Not Recovered/Not Resolved]
